FAERS Safety Report 16304164 (Version 1)
Quarter: 2019Q2

REPORT INFORMATION
  Report Type: Spontaneous
  Country: ES (occurrence: ES)
  Receive Date: 20190513
  Receipt Date: 20190513
  Transmission Date: 20190711
  Serious: Yes (Other)
  Sender: FDA-Public Use
  Company Number: ES-BAYER-2019-092758

PATIENT
  Age: 57 Year
  Sex: Female

DRUGS (1)
  1. MOXIFLOXACIN ORAL [Suspect]
     Active Substance: MOXIFLOXACIN
     Indication: PNEUMONIA
     Dosage: UNK
     Route: 048
     Dates: start: 201707, end: 2017

REACTIONS (2)
  - Intraocular pressure increased [Unknown]
  - Iris hypopigmentation [Not Recovered/Not Resolved]

NARRATIVE: CASE EVENT DATE: 201709
